FAERS Safety Report 8376474-0 (Version None)
Quarter: 2012Q2

REPORT INFORMATION
  Report Type: 
  Country: None (occurrence: None)
  Receive Date: 20120522
  Receipt Date: 20120514
  Transmission Date: 20120825
  Serious: Yes (Other)
  Sender: FDA-Public Use
  Company Number: JP-VERTEX PHARMACEUTICALS INC.-AE-2012-001804

PATIENT
  Age: 74 Year
  Sex: Female

DRUGS (14)
  1. TELAVIC (TELAPREVIR) [Suspect]
     Route: 048
     Dates: end: 20120402
  2. OMEPRAZOLE [Concomitant]
     Route: 048
     Dates: start: 20120126
  3. PEG-INTRON [Concomitant]
     Route: 058
  4. REBETOL [Concomitant]
     Route: 048
     Dates: start: 20120410
  5. ZOLPIDEM [Concomitant]
     Route: 048
     Dates: start: 20120124
  6. TELAVIC (TELAPREVIR) [Suspect]
     Indication: HEPATITIS C
     Route: 048
     Dates: start: 20120124, end: 20120131
  7. PEG-INTRON [Concomitant]
     Route: 058
     Dates: start: 20120124, end: 20120131
  8. REBETOL [Concomitant]
     Route: 048
     Dates: start: 20120313, end: 20120409
  9. CONIEL [Concomitant]
     Route: 048
     Dates: start: 20120124, end: 20120125
  10. BETAMAC [Concomitant]
     Route: 048
     Dates: start: 20120130
  11. GASMOTIN [Concomitant]
     Route: 048
     Dates: start: 20120125
  12. TELAVIC (TELAPREVIR) [Suspect]
     Route: 048
     Dates: start: 20120214
  13. TELAVIC (TELAPREVIR) [Suspect]
     Route: 048
     Dates: start: 20120403
  14. REBETOL [Concomitant]
     Route: 048
     Dates: start: 20120124, end: 20120131

REACTIONS (3)
  - BLOOD URIC ACID INCREASED [None]
  - ANAEMIA [None]
  - RENAL FAILURE ACUTE [None]
